FAERS Safety Report 6359509-6 (Version None)
Quarter: 2009Q3

REPORT INFORMATION
  Report Type: 
  Country: None (occurrence: None)
  Receive Date: 20090917
  Receipt Date: 20090914
  Transmission Date: 20100115
  Serious: Yes (Hospitalization)
  Sender: FDA-Public Use
  Company Number: JP-AVENTIS-200912590JP

PATIENT
  Age: 60 Year
  Sex: Male

DRUGS (4)
  1. AMARYL [Suspect]
     Indication: TYPE 2 DIABETES MELLITUS
     Route: 048
     Dates: start: 20081007, end: 20090827
  2. AMARYL [Suspect]
     Route: 048
     Dates: start: 20090828, end: 20090911
  3. ORAL BLOOD GLUCOSE LOWERING DRUGS [Suspect]
     Indication: TYPE 2 DIABETES MELLITUS
     Dosage: DOSE: 1 TAB
     Route: 048
     Dates: start: 20081227, end: 20090316
  4. ORAL BLOOD GLUCOSE LOWERING DRUGS [Suspect]
     Route: 048
     Dates: start: 20090317, end: 20090911

REACTIONS (1)
  - CELLULITIS [None]
